FAERS Safety Report 5731732-0 (Version None)
Quarter: 2008Q2

REPORT INFORMATION
  Report Type: 
  Country: None (occurrence: None)
  Receive Date: 20080508
  Receipt Date: 20080429
  Transmission Date: 20081010
  Serious: Yes (Other)
  Sender: FDA-Public Use
  Company Number: PHHY2008GB07057

PATIENT
  Sex: Female

DRUGS (1)
  1. VOLTAREN [Suspect]
     Dosage: 50 MG

REACTIONS (1)
  - GASTRIC BANDING [None]
